FAERS Safety Report 8599935 (Version 2)
Quarter: 2012Q4

REPORT INFORMATION
  Report Type: 
  Country: US (occurrence: US)
  Receive Date: 20120605
  Receipt Date: 20120912
  Transmission Date: 20130627
  Serious: Yes (Hospitalization, Other)
  Sender: FDA-Public Use
  Company Number: US-BAXTER-2012BAX007037

PATIENT
  Sex: Male

DRUGS (2)
  1. DIANEAL LOW CALCIUM [Suspect]
     Indication: PERITONEAL DIALYSIS
     Route: 033
  2. DIANEAL LOW CALCIUM [Suspect]
     Indication: PERITONEAL DIALYSIS
     Route: 033
     Dates: start: 20120503

REACTIONS (5)
  - Organ failure [Recovered/Resolved]
  - Renal necrosis [Recovered/Resolved]
  - Kidney transplant rejection [Recovered/Resolved]
  - Abscess [Recovered/Resolved]
  - Infection [Recovered/Resolved]
